FAERS Safety Report 16158263 (Version 2)
Quarter: 2019Q2

REPORT INFORMATION
  Report Type: Spontaneous
  Country: US (occurrence: US)
  Receive Date: 20190404
  Receipt Date: 20190501
  Transmission Date: 20190711
  Serious: Yes (Other)
  Sender: FDA-Public Use
  Company Number: US-BAYER-2019-068029

PATIENT
  Age: 26 Year
  Sex: Female

DRUGS (4)
  1. MIRENA [Suspect]
     Active Substance: LEVONORGESTREL
     Indication: CONTRACEPTION
     Dosage: 20 MCG/24HR, CONT
     Route: 015
     Dates: start: 20151221, end: 20190204
  2. ESCITALOPRAM OXALATE. [Concomitant]
     Active Substance: ESCITALOPRAM OXALATE
     Dosage: 10 MG
     Route: 048
     Dates: start: 20180924
  3. JUNEL FE 1/20 [Concomitant]
     Active Substance: ETHINYL ESTRADIOL\NORETHINDRONE ACETATE
     Dosage: UNK
     Route: 048
     Dates: start: 20190319
  4. MIRENA [Suspect]
     Active Substance: LEVONORGESTREL
     Indication: CONTRACEPTION

REACTIONS (6)
  - Amenorrhoea [Recovered/Resolved]
  - Device dislocation [Recovered/Resolved]
  - Uterine haemorrhage [None]
  - Pelvic fluid collection [None]
  - Dysmenorrhoea [None]
  - Vaginal haemorrhage [None]

NARRATIVE: CASE EVENT DATE: 2015
